FAERS Safety Report 10085253 (Version 1)
Quarter: 2014Q2

REPORT INFORMATION
  Report Type: Spontaneous
  Country: TW (occurrence: TW)
  Receive Date: 20140417
  Receipt Date: 20140417
  Transmission Date: 20141212
  Serious: Yes (Other)
  Sender: FDA-Public Use
  Company Number: PHHY2014TW043125

PATIENT
  Age: 47 Year
  Sex: Female

DRUGS (1)
  1. DOCETAXEL [Suspect]
     Indication: INVASIVE DUCTAL BREAST CARCINOMA
     Dosage: 75 MG/M2, DILUTED IN 250 ML OF 0.9% SALINE

REACTIONS (12)
  - Skin reaction [Recovering/Resolving]
  - Skin injury [Recovering/Resolving]
  - Infusion site extravasation [Recovering/Resolving]
  - Sensory disturbance [Recovering/Resolving]
  - Infusion site swelling [Recovering/Resolving]
  - Swelling [Recovering/Resolving]
  - Erythema [Recovering/Resolving]
  - Pruritus [Recovering/Resolving]
  - Tenderness [Recovering/Resolving]
  - Oedema [Recovering/Resolving]
  - Skin exfoliation [Recovering/Resolving]
  - Skin hyperpigmentation [Recovering/Resolving]
